FAERS Safety Report 24075086 (Version 1)
Quarter: 2024Q3

REPORT INFORMATION
  Report Type: Spontaneous
  Country: ZA (occurrence: None)
  Receive Date: 20240710
  Receipt Date: 20240710
  Transmission Date: 20241016
  Serious: Yes (Hospitalization)
  Sender: ASTRAZENECA
  Company Number: 2024A153479

PATIENT
  Age: 67 Year
  Sex: Male

DRUGS (4)
  1. DAPAGLIFLOZIN PROPANEDIOL [Suspect]
     Active Substance: DAPAGLIFLOZIN PROPANEDIOL
     Indication: Diabetes mellitus
     Route: 048
  2. GLICLAZIDE [Concomitant]
     Active Substance: GLICLAZIDE
     Indication: Diabetes mellitus
     Route: 048
  3. ATORVASTATIN [Concomitant]
     Active Substance: ATORVASTATIN
     Indication: Blood cholesterol
     Route: 048
  4. OMEPRAZOLE [Concomitant]
     Active Substance: OMEPRAZOLE
     Indication: Gastrooesophageal reflux disease
     Route: 048

REACTIONS (2)
  - Colon cancer [Unknown]
  - Haemorrhage [Unknown]
